FAERS Safety Report 24326296 (Version 2)
Quarter: 2024Q4

REPORT INFORMATION
  Report Type: Spontaneous
  Country: ZA (occurrence: ZA)
  Receive Date: 20240917
  Receipt Date: 20241209
  Transmission Date: 20250115
  Serious: Yes (Hospitalization)
  Sender: ALEXION PHARMACEUTICALS
  Company Number: 2024A209055

PATIENT
  Age: 81 Year

DRUGS (12)
  1. DAPAGLIFLOZIN [Suspect]
     Active Substance: DAPAGLIFLOZIN
     Indication: Type 2 diabetes mellitus
     Dosage: 10 MILLIGRAM, UNK, FREQUENCY: UNK
  2. DAPAGLIFLOZIN [Suspect]
     Active Substance: DAPAGLIFLOZIN
     Dosage: 10 MILLIGRAM, UNK, FREQUENCY: UNK
     Route: 048
  3. DAPAGLIFLOZIN [Suspect]
     Active Substance: DAPAGLIFLOZIN
     Dosage: 10 MILLIGRAM, UNK, FREQUENCY: UNK
  4. DAPAGLIFLOZIN [Suspect]
     Active Substance: DAPAGLIFLOZIN
     Dosage: 10 MILLIGRAM, UNK, FREQUENCY: UNK
     Route: 048
  5. PANTOCID [Concomitant]
     Indication: Ulcer
     Dosage: 40 MILLIGRAM, UNK
     Route: 048
  6. PANTOCID [Concomitant]
     Indication: Dyspepsia
     Dosage: 40 MILLIGRAM, UNK
  7. PANTOCID [Concomitant]
     Indication: Gastrinoma
  8. PANTOCID [Concomitant]
     Indication: Helicobacter gastritis
  9. ASPIRIN [Concomitant]
     Active Substance: ASPIRIN
     Indication: Anticoagulant therapy
     Dosage: 100 MILLIGRAM, UNK
     Route: 048
  10. ASPIRIN [Concomitant]
     Active Substance: ASPIRIN
     Dosage: 100 MILLIGRAM, UNK
  11. LIPOGEN [Concomitant]
     Indication: Blood cholesterol
     Dosage: 10 MILLIGRAM, UNK
     Route: 048
  12. LIPOGEN [Concomitant]
     Dosage: 10 MILLIGRAM, UNK

REACTIONS (1)
  - Cardiac disorder [Unknown]
